FAERS Safety Report 12894976 (Version 1)
Quarter: 2016Q4

REPORT INFORMATION
  Report Type: Spontaneous
  Country: FR (occurrence: FR)
  Receive Date: 20161028
  Receipt Date: 20161028
  Transmission Date: 20170207
  Serious: Yes (Other)
  Sender: FDA-Public Use
  Company Number: FR-ASTRAZENECA-2016SF11582

PATIENT
  Age: 30203 Day
  Sex: Female

DRUGS (21)
  1. VANCOMYCINE [Suspect]
     Active Substance: VANCOMYCIN
     Indication: HYPERTHERMIA
     Route: 042
     Dates: start: 20160928, end: 201609
  2. GENTAMICINE [Suspect]
     Active Substance: GENTAMICIN
     Indication: HYPERTHERMIA
     Route: 042
     Dates: start: 20160928, end: 20160928
  3. ELIQUIS [Concomitant]
     Active Substance: APIXABAN
     Route: 048
     Dates: end: 20161008
  4. TAHOR [Concomitant]
     Active Substance: ATORVASTATIN CALCIUM
  5. BISOPROLOL [Concomitant]
     Active Substance: BISOPROLOL
  6. ZYLORIC [Suspect]
     Active Substance: ALLOPURINOL
     Route: 048
     Dates: start: 2016, end: 20160927
  7. LEVOTHYROX [Concomitant]
     Active Substance: LEVOTHYROXINE
     Route: 048
  8. DEPAMIDE [Concomitant]
     Active Substance: VALPROMIDE
  9. GAVISCON [Concomitant]
     Active Substance: ALUMINUM HYDROXIDE\MAGNESIUM CARBONATE
  10. FUROSEMIDE. [Concomitant]
     Active Substance: FUROSEMIDE
     Route: 048
  11. SERTRALINE [Concomitant]
     Active Substance: SERTRALINE HYDROCHLORIDE
     Route: 048
  12. SALBUTAMOL [Suspect]
     Active Substance: ALBUTEROL
     Dosage: 2.5MG/2.5ML 1DF THREE TIMES A DAY
     Route: 055
     Dates: start: 20160928, end: 20161001
  13. INEXIUM [Suspect]
     Active Substance: ESOMEPRAZOLE
     Indication: GASTROOESOPHAGEAL REFLUX DISEASE
     Route: 048
     Dates: start: 20160927, end: 20161005
  14. VANCOMYCINE [Suspect]
     Active Substance: VANCOMYCIN
     Indication: HYPERTHERMIA
     Route: 042
     Dates: start: 201609
  15. PARACETAMOL [Suspect]
     Active Substance: ACETAMINOPHEN
     Indication: HYPERTHERMIA
     Route: 048
     Dates: start: 20160927, end: 20160930
  16. IPATROPIUM BROMIDE [Suspect]
     Active Substance: IPRATROPIUM BROMIDE
     Dosage: 0.5MG/2ML 1DF THREE TIMES A DAY
     Route: 055
     Dates: start: 20160928, end: 20161001
  17. CEFTRIAXONE. [Suspect]
     Active Substance: CEFTRIAXONE
     Route: 042
     Dates: start: 20160927, end: 20161001
  18. METRONIDAZOLE. [Suspect]
     Active Substance: METRONIDAZOLE
     Dosage: THREE TIMES A DAY
     Route: 042
     Dates: start: 20160928, end: 20161001
  19. COLCHICINE. [Suspect]
     Active Substance: COLCHICINE
     Route: 048
     Dates: start: 201605, end: 20160927
  20. RAMIPRIL. [Concomitant]
     Active Substance: RAMIPRIL
  21. ATARAX [Concomitant]
     Active Substance: HYDROXYZINE\HYDROXYZINE HYDROCHLORIDE

REACTIONS (1)
  - Drug reaction with eosinophilia and systemic symptoms [Recovering/Resolving]

NARRATIVE: CASE EVENT DATE: 20160930
